FAERS Safety Report 10535546 (Version 3)
Quarter: 2014Q4

REPORT INFORMATION
  Report Type: Report from Study
  Country: US (occurrence: US)
  Receive Date: 20141022
  Receipt Date: 20141203
  Transmission Date: 20150529
  Serious: Yes (Other)
  Sender: FDA-Public Use
  Company Number: US-SA-2014SA142489

PATIENT
  Sex: Female

DRUGS (5)
  1. LANTUS SOLOSTAR [Suspect]
     Active Substance: INSULIN GLARGINE
     Indication: TYPE 2 DIABETES MELLITUS
     Dosage: DOSE - 15 (UNITS UNSPECIFIED)
     Route: 065
  2. SOLOSTAR [Concomitant]
     Active Substance: DEVICE
  3. GLUCAGON. [Concomitant]
     Active Substance: GLUCAGON
  4. THERAPEUTIC RADIOPHARMACEUTICALS [Concomitant]
     Active Substance: RADIATION THERAPY
  5. ANTINEOPLASTIC AGENTS [Concomitant]
     Active Substance: UNSPECIFIED INGREDIENT

REACTIONS (6)
  - Surgery [Unknown]
  - Peripheral swelling [Unknown]
  - Neoplasm malignant [Unknown]
  - Blood glucose increased [Unknown]
  - Cardiac operation [Unknown]
  - Fatigue [Unknown]

NARRATIVE: CASE EVENT DATE: 2014
